FAERS Safety Report 8469294-X (Version None)
Quarter: 2012Q2

REPORT INFORMATION
  Report Type: 
  Country: None (occurrence: None)
  Receive Date: 20120626
  Receipt Date: 20120619
  Transmission Date: 20120825
  Serious: Yes (Other)
  Sender: FDA-Public Use
  Company Number: US-ELI_LILLY_AND_COMPANY-US201206006555

PATIENT
  Sex: Male

DRUGS (14)
  1. ALLOPURINOL [Concomitant]
     Dosage: 100 MG, UNK
  2. ZYRTEC [Concomitant]
     Dosage: 2 UNK, UNK
  3. DOXEPIN [Concomitant]
     Indication: HYPERSENSITIVITY
     Dosage: 50 MG, QD
  4. EFFIENT [Suspect]
     Indication: STENT PLACEMENT
     Dosage: 10 MG, UNK
     Dates: start: 20120125
  5. ATENOLOL [Concomitant]
  6. ASPIRIN [Concomitant]
  7. VITAMIN E [Concomitant]
  8. CRESTOR [Concomitant]
  9. PRILOSEC [Concomitant]
  10. HYDROCHLOROTHIAZIDE [Concomitant]
  11. RANEXA [Concomitant]
     Dosage: 500 MG, BID
  12. MULTI-VITAMIN [Concomitant]
  13. FISH OIL [Concomitant]
     Dosage: 1200 U, UNK
  14. GLUCOSAMINE [Concomitant]
     Dosage: 2000 U, UNK

REACTIONS (2)
  - VENTRICULAR EXTRASYSTOLES [None]
  - DYSPNOEA [None]
